FAERS Safety Report 5781941-X (Version None)
Quarter: 2008Q2

REPORT INFORMATION
  Report Type: 
  Country: None (occurrence: None)
  Receive Date: 20080623
  Receipt Date: 20080612
  Transmission Date: 20081010
  Serious: Yes (Hospitalization)
  Sender: FDA-Public Use
  Company Number: B0525612A

PATIENT
  Age: 44 Year
  Sex: Male

DRUGS (4)
  1. CEFUROXIME [Suspect]
     Indication: SINUSITIS
     Dosage: 1TAB PER DAY
     Route: 048
     Dates: start: 20080610, end: 20080610
  2. SOLUPRED [Suspect]
     Indication: SINUSITIS
     Dosage: 4TAB PER DAY
     Route: 048
     Dates: start: 20080610, end: 20080601
  3. DERINOX [Suspect]
     Indication: SINUSITIS
     Route: 065
     Dates: start: 20080610, end: 20080601
  4. XYZAL [Suspect]
     Indication: SINUSITIS
     Dosage: 1TAB PER DAY
     Route: 048
     Dates: start: 20080610

REACTIONS (7)
  - ABDOMINAL PAIN UPPER [None]
  - BLISTER [None]
  - ERYTHEMA [None]
  - MALAISE [None]
  - RASH [None]
  - ROAD TRAFFIC ACCIDENT [None]
  - SKIN PLAQUE [None]
